FAERS Safety Report 13906786 (Version 2)
Quarter: 2017Q3

REPORT INFORMATION
  Report Type: Spontaneous
  Country: JP (occurrence: JP)
  Receive Date: 20170825
  Receipt Date: 20170906
  Transmission Date: 20171127
  Serious: Yes (Hospitalization)
  Sender: FDA-Public Use
  Company Number: JP-BAYER-2017-158029

PATIENT
  Sex: Female

DRUGS (1)
  1. BETAFERON [Suspect]
     Active Substance: INTERFERON BETA-1B
     Route: 058

REACTIONS (2)
  - Fatigue [Recovering/Resolving]
  - Device breakage [Unknown]
